FAERS Safety Report 20966779 (Version 7)
Quarter: 2023Q4

REPORT INFORMATION
  Report Type: Report from Study
  Country: KR (occurrence: KR)
  Receive Date: 20220616
  Receipt Date: 20231027
  Transmission Date: 20240110
  Serious: Yes (Hospitalization, Other)
  Sender: FDA-Public Use
  Company Number: KR-GLAXOSMITHKLINE-KR2022GSK093281

PATIENT

DRUGS (33)
  1. BELIMUMAB [Suspect]
     Active Substance: BELIMUMAB
     Indication: Systemic lupus erythematosus
     Dosage: 520 EVERY 2 WEEKS
     Route: 042
     Dates: start: 20220601, end: 20220601
  2. BELIMUMAB [Suspect]
     Active Substance: BELIMUMAB
     Dosage: 520 EVERY 2 WEEKS
     Route: 042
     Dates: start: 20220614
  3. HYDROCORTISONE [Concomitant]
     Active Substance: HYDROCORTISONE
     Indication: Product used for unknown indication
     Dosage: 120, QD
     Route: 048
     Dates: start: 20220604, end: 20220604
  4. HYDROCORTISONE [Concomitant]
     Active Substance: HYDROCORTISONE
     Dosage: 190, QD
     Route: 048
     Dates: start: 20220605, end: 20220605
  5. HYDROCORTISONE [Concomitant]
     Active Substance: HYDROCORTISONE
     Dosage: 250, QD
     Route: 048
     Dates: start: 20220606, end: 20220606
  6. HYDROCORTISONE [Concomitant]
     Active Substance: HYDROCORTISONE
     Dosage: 40, QD
     Route: 048
     Dates: start: 20220607, end: 20220613
  7. HYDROCORTISONE [Concomitant]
     Active Substance: HYDROCORTISONE
     Dosage: 30, QD
     Route: 048
     Dates: start: 20220614, end: 20220614
  8. DERMOTASONE MLE CREAM [Concomitant]
     Indication: Product used for unknown indication
     Dosage: 1, QD
     Route: 050
     Dates: start: 20220531, end: 20220531
  9. ESPERSON LOTION [Concomitant]
     Indication: Product used for unknown indication
     Dosage: 1, (0.25% 20ML), TID
     Route: 050
     Dates: start: 20220531, end: 20220531
  10. CORTISOLU INJECTION [Concomitant]
     Indication: Product used for unknown indication
     Dosage: 0.5, QD (100 MG)
     Route: 042
     Dates: start: 20220606, end: 20220606
  11. PREDISOL INJECTION [Concomitant]
     Indication: Product used for unknown indication
     Dosage: 25, QD (125 MG)
     Route: 042
     Dates: start: 20220601, end: 20220602
  12. SOLONDO TABLET [Concomitant]
     Indication: Product used for unknown indication
     Dosage: 0.5, QD (5 MG)
     Route: 048
     Dates: start: 20190604, end: 20220608
  13. SOLONDO TABLET [Concomitant]
     Dosage: 0.5, QD (5 MG)
     Route: 048
     Dates: start: 20220617, end: 20220628
  14. SOLONDO TABLET [Concomitant]
     Dosage: 0.5, QD ( 5 MG)
     Route: 048
     Dates: start: 20220616, end: 20220616
  15. LYRICA [Concomitant]
     Active Substance: PREGABALIN
     Indication: Neuropathy peripheral
     Dosage: 1, BID (75 MG)
     Route: 048
     Dates: start: 20220525, end: 20220629
  16. REQUIP [Concomitant]
     Active Substance: ROPINIROLE HYDROCHLORIDE
     Indication: Neuropathy peripheral
     Dosage: 1, QD (0.25 MG)
     Route: 048
     Dates: start: 20220531, end: 20220603
  17. REQUIP [Concomitant]
     Active Substance: ROPINIROLE HYDROCHLORIDE
     Dosage: 1, QD (0.25 MG)
     Route: 048
     Dates: start: 20220604, end: 20220615
  18. K-CAB TABLET [Concomitant]
     Indication: Prophylaxis
     Dosage: 1, QD (50 MG)
     Route: 048
     Dates: start: 20220414
  19. MEGACE F SUSPENSION [Concomitant]
     Indication: Increased appetite
     Dosage: 1, QD (5 ML)
     Route: 048
     Dates: start: 20220603, end: 20220629
  20. MECKOOL INJECTION [Concomitant]
     Indication: Prophylaxis
     Dosage: 1, QD (10 MG)
     Route: 048
     Dates: start: 20220601, end: 20220601
  21. DUZELA [Concomitant]
     Indication: Neuropathy peripheral
     Dosage: 1, QD (30 MG)
     Route: 048
     Dates: start: 20220531, end: 20220602
  22. NORVASC [Concomitant]
     Active Substance: AMLODIPINE BESYLATE
     Indication: Hypertension
     Dosage: 1, QD (5 MG)
     Route: 048
     Dates: start: 20220601, end: 20220603
  23. CITUS TABLET [Concomitant]
     Indication: Interstitial lung disease
     Dosage: 1, BID (50 MG)
     Route: 048
     Dates: start: 20220531, end: 20220602
  24. PENIRAMIN INJECTION [Concomitant]
     Indication: Prophylaxis
     Dosage: 1, QD (4 MG)
     Route: 048
     Dates: start: 20220601, end: 20220601
  25. PENIRAMIN INJECTION [Concomitant]
     Dosage: 1, QD (4 MG)
     Route: 048
     Dates: start: 20220614, end: 20220614
  26. ESODUO TABLET [Concomitant]
     Indication: Prophylaxis
     Dosage: 1, BID (20/800)
     Route: 048
     Dates: start: 20200720, end: 20220608
  27. TASNA TABLET [Concomitant]
     Indication: Metabolic acidosis
     Dosage: 1, BID (500 MG)
     Route: 048
     Dates: start: 20220602, end: 20220629
  28. ETRAVIL TABLET [Concomitant]
     Indication: Neuropathy peripheral
     Dosage: 1, QD (10 MG)
     Route: 048
     Dates: start: 20200923, end: 20220629
  29. SENSIVAL TABLET [Concomitant]
     Indication: Neuropathy peripheral
     Dosage: 1, QD (10 MG)
     Route: 048
     Dates: start: 20200531, end: 20220615
  30. FOSTER HFA [Concomitant]
     Indication: Interstitial lung disease
     Dosage: 1, BID, ORAL INHALATION 100/6 HFA
     Dates: start: 20220531, end: 20220531
  31. DIMENHYDRINATE [Concomitant]
     Active Substance: DIMENHYDRINATE
     Indication: Prophylaxis
     Dosage: 1, BID (50 MG)
     Route: 048
     Dates: start: 20160929, end: 20220703
  32. NEROMIN TABLET [Concomitant]
     Indication: Vitamin supplementation
     Dosage: 1, QD
     Route: 048
     Dates: start: 20200923, end: 20220531
  33. OMAPONE PERI INJECTION [Concomitant]
     Indication: Nutritional supplementation
     Dosage: UNK, QD (500 ML)
     Route: 042
     Dates: start: 20220603, end: 20220603

REACTIONS (4)
  - Myocardial necrosis marker increased [Recovered/Resolved]
  - Anaemia [Recovered/Resolved]
  - Dyspnoea [Recovered/Resolved]
  - Urinary tract infection [Recovered/Resolved]

NARRATIVE: CASE EVENT DATE: 20220614
